FAERS Safety Report 8053286-9 (Version None)
Quarter: 2012Q1

REPORT INFORMATION
  Report Type: 
  Country: None (occurrence: None)
  Receive Date: 20120118
  Receipt Date: 20120110
  Transmission Date: 20120608
  Serious: No
  Sender: FDA-Public Use
  Company Number: US-BAYER-2012-005276

PATIENT
  Age: 68 Year
  Sex: Female

DRUGS (2)
  1. UNSPECIFIED OTHER ANTI-COAGULANT OTHER THAN WARFARIN [Concomitant]
     Indication: ANTICOAGULANT THERAPY
  2. VENTAVIS [Suspect]
     Indication: PULMONARY ARTERIAL HYPERTENSION
     Dosage: UNK
     Route: 055
     Dates: start: 20111212

REACTIONS (2)
  - ASTHENIA [None]
  - BLOOD PRESSURE DECREASED [None]
